FAERS Safety Report 6362239-8 (Version None)
Quarter: 2009Q3

REPORT INFORMATION
  Report Type: 
  Country: None (occurrence: None)
  Receive Date: 20090918
  Receipt Date: 20090710
  Transmission Date: 20100115
  Serious: No
  Sender: FDA-Public Use
  Company Number: US-ABBOTT-09P-163-0577954-00

PATIENT
  Sex: Female
  Weight: 81.72 kg

DRUGS (6)
  1. HUMIRA [Suspect]
     Indication: PSORIATIC ARTHROPATHY
     Route: 058
     Dates: start: 20090523
  2. HUMIRA [Suspect]
  3. SYNTHROID [Concomitant]
     Indication: HYPOTHYROIDISM
     Route: 048
  4. HYDROCHLOROTHIAZIDE [Concomitant]
     Indication: HYPERTENSION
     Route: 048
  5. LISINOPRIL [Concomitant]
     Indication: HYPERTENSION
     Route: 048
  6. MULTI-VITAMINS [Concomitant]
     Indication: MEDICAL DIET

REACTIONS (10)
  - ARTHRALGIA [None]
  - DRUG EFFECT DECREASED [None]
  - FATIGUE [None]
  - INJECTION SITE HAEMATOMA [None]
  - INJECTION SITE PAIN [None]
  - INJECTION SITE REACTION [None]
  - INJECTION SITE WARMTH [None]
  - MALAISE [None]
  - PAIN [None]
  - RASH [None]
